FAERS Safety Report 7196279-6 (Version None)
Quarter: 2010Q4

REPORT INFORMATION
  Report Type: 
  Country: None (occurrence: None)
  Receive Date: 20101223
  Receipt Date: 20101020
  Transmission Date: 20110411
  Serious: No
  Sender: FDA-Public Use
  Company Number: US-AMGEN-TCS440298

PATIENT

DRUGS (13)
  1. ENBREL [Suspect]
     Indication: RHEUMATOID ARTHRITIS
     Dosage: 50 MG, QWK
     Route: 058
     Dates: start: 19960101
  2. UNKNOWN DRUG[INGREDIENT UNKNOWN] [Concomitant]
     Indication: PRODUCT USED FOR UNKNOWN INDICATION
  3. METHOTREXATE [Concomitant]
     Indication: RHEUMATOID ARTHRITIS
     Dosage: 0.6 UNK, QWK
     Route: 058
  4. PLAQUENIL [Concomitant]
     Dosage: 200 UNK, QD
     Route: 048
  5. CELEBREX [Concomitant]
  6. FOLIC ACID [Concomitant]
  7. TRAMADOL HCL [Concomitant]
  8. PROTONIX [Concomitant]
  9. ZANTAC                             /00550801/ [Concomitant]
  10. TOPROL-XL [Concomitant]
  11. XANAX [Concomitant]
  12. PROZAC                             /00724401/ [Concomitant]
  13. AMBIEN [Concomitant]

REACTIONS (9)
  - INJECTION SITE DISCHARGE [None]
  - INJECTION SITE ERYTHEMA [None]
  - INJECTION SITE PAIN [None]
  - INJECTION SITE PRURITUS [None]
  - INJECTION SITE REACTION [None]
  - INJECTION SITE SWELLING [None]
  - INJECTION SITE WARMTH [None]
  - RHEUMATOID ARTHRITIS [None]
  - WRONG TECHNIQUE IN DRUG USAGE PROCESS [None]
